FAERS Safety Report 9366636 (Version 1)
Quarter: 2013Q2

REPORT INFORMATION
  Report Type: Spontaneous
  Country: US (occurrence: US)
  Receive Date: 20130625
  Receipt Date: 20130625
  Transmission Date: 20140414
  Serious: No
  Sender: FDA-Public Use
  Company Number: US-BAYER-2013-077408

PATIENT
  Sex: Female
  Weight: 100 kg

DRUGS (15)
  1. BETASERON [Suspect]
     Indication: MULTIPLE SCLEROSIS
     Dosage: UNK
     Dates: start: 2004, end: 2008
  2. ADDERALL [Concomitant]
  3. ASA [Concomitant]
  4. BACLOFEN [Concomitant]
  5. BLACK COHOSH [Concomitant]
  6. BYSTOLIC [Concomitant]
  7. FUROSEMIDE [Concomitant]
  8. IRON [Concomitant]
  9. METHYLPHENIDATE [Concomitant]
  10. TOPIRAMATE [Concomitant]
  11. POTASSIUM [Concomitant]
  12. VIIBRYD [Concomitant]
  13. VITAMIN B12 [Concomitant]
  14. VITAMIN C [Concomitant]
  15. VITAMIN D [Concomitant]

REACTIONS (1)
  - Injection site bruising [None]
